FAERS Safety Report 12290070 (Version 2)
Quarter: 2016Q2

REPORT INFORMATION
  Report Type: Spontaneous
  Country: US (occurrence: US)
  Receive Date: 20160421
  Receipt Date: 20160519
  Transmission Date: 20160815
  Serious: No
  Sender: FDA-Public Use
  Company Number: US-GLAXOSMITHKLINE-US2016047582

PATIENT
  Age: 72 Year
  Sex: Female
  Weight: 142.4 kg

DRUGS (1)
  1. TANZEUM [Suspect]
     Active Substance: ALBIGLUTIDE
     Indication: DIABETES MELLITUS
     Dosage: 30 MG, UNK
     Route: 042
     Dates: start: 20160331

REACTIONS (1)
  - Diarrhoea [Not Recovered/Not Resolved]
